FAERS Safety Report 14197752 (Version 1)
Quarter: 2017Q4

REPORT INFORMATION
  Report Type: Spontaneous
  Country: BR (occurrence: BR)
  Receive Date: 20171117
  Receipt Date: 20171117
  Transmission Date: 20180321
  Serious: Yes (Other)
  Sender: FDA-Public Use
  Company Number: BR-AMGEN-BRASP2017170348

PATIENT
  Age: 31 Year
  Sex: Female
  Weight: 62 kg

DRUGS (1)
  1. BLINCYTO [Suspect]
     Active Substance: BLINATUMOMAB
     Indication: LEUKAEMIA RECURRENT
     Dosage: 9 MUG, QD
     Route: 065
     Dates: start: 20171101, end: 20171105

REACTIONS (4)
  - Hepatotoxicity [Recovering/Resolving]
  - Neutropenia [Unknown]
  - Nephropathy toxic [Recovering/Resolving]
  - Pancytopenia [Unknown]

NARRATIVE: CASE EVENT DATE: 20171105
